FAERS Safety Report 8596109-1 (Version None)
Quarter: 2012Q3

REPORT INFORMATION
  Report Type: 
  Country: None (occurrence: None)
  Receive Date: 20120801
  Receipt Date: 20120724
  Transmission Date: 20120928
  Serious: Yes (Hospitalization)
  Sender: FDA-Public Use
  Company Number: 2012MA009178

PATIENT
  Sex: Male

DRUGS (3)
  1. SERTRALINE HYDROCHLORIDE [Suspect]
  2. ZOLPIDEM TARTRATE [Suspect]
  3. ALPRAZOLAM [Suspect]

REACTIONS (1)
  - SELF INJURIOUS BEHAVIOUR [None]
